FAERS Safety Report 6206782-0 (Version None)
Quarter: 2009Q2

REPORT INFORMATION
  Report Type: 
  Country: None (occurrence: None)
  Receive Date: 20090528
  Receipt Date: 20090519
  Transmission Date: 20091009
  Serious: Yes (Other)
  Sender: FDA-Public Use
  Company Number: JP-AVENTIS-200911400JP

PATIENT
  Age: 51 Year
  Sex: Male

DRUGS (2)
  1. LASIX [Suspect]
     Route: 048
     Dates: start: 20080801, end: 20080801
  2. UNKNOWN DRUG [Concomitant]

REACTIONS (1)
  - STEVENS-JOHNSON SYNDROME [None]
